FAERS Safety Report 10252295 (Version 3)
Quarter: 2014Q3

REPORT INFORMATION
  Report Type: Spontaneous
  Country: JP (occurrence: JP)
  Receive Date: 20140623
  Receipt Date: 20140717
  Transmission Date: 20150326
  Serious: Yes (Hospitalization)
  Sender: FDA-Public Use
  Company Number: PHHY2014JP057370

PATIENT
  Age: 54 Year
  Sex: Male
  Weight: 56 kg

DRUGS (8)
  1. ABILIFY [Concomitant]
     Active Substance: ARIPIPRAZOLE
     Dosage: UNK
     Route: 048
     Dates: start: 20140501, end: 20140502
  2. MAGNESIUM OXIDE. [Concomitant]
     Active Substance: MAGNESIUM OXIDE
     Indication: CONSTIPATION
     Dosage: 660 MG, UNK
     Route: 048
     Dates: start: 20140426
  3. BENZALIN [Concomitant]
     Active Substance: NITRAZEPAM
     Indication: INSOMNIA
     Dosage: UNK
     Route: 048
     Dates: start: 20140501
  4. HIBERNA [Concomitant]
     Active Substance: PROMETHAZINE HYDROCHLORIDE
     Indication: PARKINSONISM
     Dosage: UNK
     Route: 048
     Dates: start: 20140501, end: 20140502
  5. CLOZARIL [Suspect]
     Active Substance: CLOZAPINE
     Indication: SCHIZOPHRENIA
     Dosage: UNK
     Route: 048
     Dates: start: 20140410
  6. LANDSEN [Concomitant]
     Active Substance: CLONAZEPAM
     Indication: ANXIETY
     Dosage: UNK
     Dates: start: 20140501
  7. CLOZARIL [Suspect]
     Active Substance: CLOZAPINE
     Dosage: 150 MG (DAILY)
     Route: 048
     Dates: start: 20140429, end: 20140502
  8. LEUCON [Concomitant]
     Indication: WHITE BLOOD CELL COUNT DECREASED
     Dosage: 60 MG, UNK
     Route: 048
     Dates: start: 20140426, end: 20140502

REACTIONS (8)
  - Oxygen saturation decreased [Recovering/Resolving]
  - Blood pressure increased [Unknown]
  - Body temperature increased [Unknown]
  - Respiratory disorder [Unknown]
  - Pulmonary embolism [Recovered/Resolved]
  - Respiratory failure [Recovering/Resolving]
  - Dizziness [Unknown]
  - Heart rate decreased [Unknown]

NARRATIVE: CASE EVENT DATE: 20140501
